FAERS Safety Report 7007369-2 (Version None)
Quarter: 2010Q3

REPORT INFORMATION
  Report Type: 
  Country: None (occurrence: None)
  Receive Date: 20100922
  Receipt Date: 20100915
  Transmission Date: 20110219
  Serious: Yes (Hospitalization)
  Sender: FDA-Public Use
  Company Number: US-GILEAD-2010-0031360

PATIENT
  Sex: Male

DRUGS (8)
  1. LETAIRIS [Suspect]
     Indication: PULMONARY ARTERIAL HYPERTENSION
     Route: 048
     Dates: start: 20090331
  2. METOPROLOL [Concomitant]
  3. NITROGLYCERIN [Concomitant]
  4. ISOSORBIDE [Concomitant]
  5. PREDNISONE [Concomitant]
  6. FAMOTIDINE [Concomitant]
  7. LIPITOR [Concomitant]
  8. PRAVASTATIN [Concomitant]

REACTIONS (1)
  - ANGINA PECTORIS [None]
